FAERS Safety Report 7446347-6 (Version None)
Quarter: 2011Q2

REPORT INFORMATION
  Report Type: 
  Country: None (occurrence: None)
  Receive Date: 20110429
  Receipt Date: 20110208
  Transmission Date: 20111010
  Serious: No
  Sender: FDA-Public Use
  Company Number: US-ASTRAZENECA-2010SE43606

PATIENT
  Age: 59 Year
  Sex: Male

DRUGS (2)
  1. OVER THE COUNTER MEDICATIONS [Concomitant]
  2. NEXIUM [Suspect]
     Route: 048

REACTIONS (3)
  - WEIGHT DECREASED [None]
  - ADVERSE EVENT [None]
  - DRUG DOSE OMISSION [None]
